FAERS Safety Report 10163976 (Version 1)
Quarter: 2014Q2

REPORT INFORMATION
  Report Type: Spontaneous
  Country: US (occurrence: US)
  Receive Date: 20140510
  Receipt Date: 20140510
  Transmission Date: 20141212
  Serious: No
  Sender: FDA-Public Use
  Company Number: US-BRISTOL-MYERS SQUIBB COMPANY-19732155

PATIENT
  Age: 74 Year
  Sex: Male
  Weight: 86.17 kg

DRUGS (5)
  1. BYETTA [Suspect]
     Indication: TYPE 2 DIABETES MELLITUS
     Dates: start: 2011
  2. SIMVASTATIN [Concomitant]
  3. ZOCOR [Concomitant]
  4. LISINOPRIL [Concomitant]
     Dosage: 1DF:1/14 MG
  5. VITAMIN D [Concomitant]

REACTIONS (2)
  - Weight decreased [Unknown]
  - Decreased appetite [Unknown]
